FAERS Safety Report 21748241 (Version 4)
Quarter: 2023Q1

REPORT INFORMATION
  Report Type: Report from Study
  Country: CZ (occurrence: CZ)
  Receive Date: 20221219
  Receipt Date: 20230323
  Transmission Date: 20230418
  Serious: Yes (Hospitalization)
  Sender: FDA-Public Use
  Company Number: CZ-ABBVIE-4233420

PATIENT
  Age: 61 Year
  Sex: Male
  Weight: 105.5 kg

DRUGS (12)
  1. PLACEBO [Suspect]
     Active Substance: UNSPECIFIED INGREDIENT
     Indication: Axial spondyloarthritis
     Route: 048
     Dates: start: 20201214, end: 20211208
  2. UPADACITINIB [Suspect]
     Active Substance: UPADACITINIB
     Indication: Axial spondyloarthritis
     Route: 048
     Dates: start: 20211209, end: 20221108
  3. METFORMIN HYDROCHLORID [Concomitant]
     Indication: Diabetes mellitus
     Route: 048
     Dates: start: 2019
  4. ATENOLOL [Concomitant]
     Active Substance: ATENOLOL
     Indication: Hypertension
     Route: 048
     Dates: start: 2005
  5. ALLOPURINOL [Concomitant]
     Active Substance: ALLOPURINOL
     Indication: Hyperuricaemia
     Route: 048
     Dates: start: 202003
  6. PANTOPRAZOLE SODIUM [Concomitant]
     Active Substance: PANTOPRAZOLE SODIUM
     Indication: Prophylaxis
     Route: 048
     Dates: start: 202003
  7. METHOTREXATE [Concomitant]
     Active Substance: METHOTREXATE
     Indication: Axial spondyloarthritis
     Route: 048
     Dates: start: 20200820
  8. FOLIC ACID [Concomitant]
     Active Substance: FOLIC ACID
     Indication: Vitamin supplementation
     Route: 048
     Dates: start: 20200604
  9. CALCIUM CARBONAS [Concomitant]
     Indication: Osteoporosis prophylaxis
     Route: 048
     Dates: start: 2020
  10. CHOLECALCIFEROL [Concomitant]
     Active Substance: CHOLECALCIFEROL
     Indication: Osteoporosis prophylaxis
     Route: 048
     Dates: start: 2020
  11. DIHYDRAT LISINOPRIL [Concomitant]
     Indication: Hypertension
     Route: 048
     Dates: start: 20210223
  12. MELOXIKAM [Concomitant]
     Indication: Axial spondyloarthritis
     Route: 048
     Dates: start: 20210601

REACTIONS (1)
  - Herpes simplex meningomyelitis [Recovered/Resolved]

NARRATIVE: CASE EVENT DATE: 20221019
